FAERS Safety Report 20245445 (Version 1)
Quarter: 2021Q4

REPORT INFORMATION
  Report Type: Report from Study
  Country: MX (occurrence: MX)
  Receive Date: 20211229
  Receipt Date: 20211229
  Transmission Date: 20220303
  Serious: Yes (Other)
  Sender: FDA-Public Use
  Company Number: MX-NOVARTISPH-PHHY2019MX104819

PATIENT
  Sex: Female
  Weight: 100 kg

DRUGS (4)
  1. HYDROCHLOROTHIAZIDE\VALSARTAN [Suspect]
     Active Substance: HYDROCHLOROTHIAZIDE\VALSARTAN
     Indication: Hypertension
     Dosage: 1 DF, QD (HYDROCHLOROTHIAZIDE 12.5 MG, VALSARTAN 80 MG)
     Route: 048
     Dates: start: 2007
  2. HYDROCHLOROTHIAZIDE\VALSARTAN [Suspect]
     Active Substance: HYDROCHLOROTHIAZIDE\VALSARTAN
     Dosage: 2 DF, QD (HYDROCHLOROTHIAZIDE 12.5 MG, VALSARTAN 80 MG)
     Route: 048
  3. HYDROCHLOROTHIAZIDE\VALSARTAN [Suspect]
     Active Substance: HYDROCHLOROTHIAZIDE\VALSARTAN
     Dosage: 1 DF, QD (HYDROCHLOROTHIAZIDE 25MG, VALSARTAN 160MG)
     Route: 048
  4. HYDROCHLOROTHIAZIDE\VALSARTAN [Suspect]
     Active Substance: HYDROCHLOROTHIAZIDE\VALSARTAN
     Dosage: 1.5 DOSAGE FORM, QD (1 TABLET IN THE MORNING AND 0.5 AT NIGHT) (HYDROCHLOROTHIAZIDE 12.5MG, VALSARTA
     Route: 048

REACTIONS (12)
  - Blood pressure increased [Unknown]
  - Cardiac disorder [Unknown]
  - Cholelithiasis [Recovered/Resolved]
  - Calculus bladder [Recovered/Resolved]
  - Colitis [Not Recovered/Not Resolved]
  - Gastritis [Not Recovered/Not Resolved]
  - Pain [Unknown]
  - Stress [Unknown]
  - Nervousness [Unknown]
  - Incorrect dose administered [Unknown]
  - Product prescribing error [Unknown]
  - Off label use [Unknown]
